FAERS Safety Report 7779055-2 (Version None)
Quarter: 2011Q3

REPORT INFORMATION
  Report Type: 
  Country: None (occurrence: None)
  Receive Date: 20110926
  Receipt Date: 20110913
  Transmission Date: 20111222
  Serious: Yes (Hospitalization)
  Sender: FDA-Public Use
  Company Number: BE-MYLANLABS-2011S1019243

PATIENT
  Age: 53 Year

DRUGS (2)
  1. DARBEPOETIN ALFA [Concomitant]
     Indication: ANAEMIA
     Route: 065
  2. ALLOPURINOL [Suspect]
     Dosage: 300 MG/DAY
     Route: 065

REACTIONS (1)
  - APLASIA PURE RED CELL [None]
